FAERS Safety Report 5189915-7 (Version None)
Quarter: 2006Q4

REPORT INFORMATION
  Report Type: 
  Country: None (occurrence: None)
  Receive Date: 20061215
  Receipt Date: 20061205
  Transmission Date: 20070319
  Serious: Yes (Other)
  Sender: FDA-Public Use
  Company Number: 2006150428

PATIENT
  Age: 58 Year
  Sex: Female

DRUGS (3)
  1. ZOLOFT [Suspect]
  2. ALCOHOL (ETHANOL) [Suspect]
  3. ANTIDEPRESSANTS [Concomitant]

REACTIONS (4)
  - ALCOHOL INTOLERANCE [None]
  - AMNESIA [None]
  - FALL [None]
  - MOOD SWINGS [None]
